FAERS Safety Report 15690839 (Version 1)
Quarter: 2018Q4

REPORT INFORMATION
  Report Type: Spontaneous
  Country: US (occurrence: US)
  Receive Date: 20181205
  Receipt Date: 20181205
  Transmission Date: 20190205
  Serious: No
  Sender: FDA-Public Use
  Company Number: US-SA-2018SA326277

PATIENT
  Age: 75 Year
  Sex: Male

DRUGS (1)
  1. MULTAQ [Suspect]
     Active Substance: DRONEDARONE
     Indication: SUPRAVENTRICULAR TACHYCARDIA
     Dosage: 400 MG, BID

REACTIONS (2)
  - Productive cough [Not Recovered/Not Resolved]
  - Bowel movement irregularity [Not Recovered/Not Resolved]
